FAERS Safety Report 20089222 (Version 1)
Quarter: 2021Q4

REPORT INFORMATION
  Report Type: Spontaneous
  Country: GB (occurrence: GB)
  Receive Date: 20211119
  Receipt Date: 20211119
  Transmission Date: 20220303
  Serious: Yes (Hospitalization, Other)
  Sender: FDA-Public Use
  Company Number: GB-IPSEN Group, Research and Development-2021-20817

PATIENT
  Age: 77 Year
  Sex: Male

DRUGS (2)
  1. CODEINE [Suspect]
     Active Substance: CODEINE
     Indication: Abdominal pain
     Dosage: UNK
     Route: 065
  2. LANREOTIDE ACETATE [Suspect]
     Active Substance: LANREOTIDE ACETATE
     Indication: Neuroendocrine tumour
     Dosage: 120 MG/0.5 ML EVERY 4 WEEKS
     Route: 058

REACTIONS (5)
  - Abdominal pain [Unknown]
  - Abdominal discomfort [Unknown]
  - Constipation [Unknown]
  - Neoplasm [Not Recovered/Not Resolved]
  - Vomiting [Unknown]
